FAERS Safety Report 10779303 (Version 1)
Quarter: 2015Q1

REPORT INFORMATION
  Report Type: Spontaneous
  Country: US (occurrence: None)
  Receive Date: 20150206
  Receipt Date: 20150206
  Transmission Date: 20150721
  Serious: Yes (Hospitalization)
  Sender: FDA-Public Use
  Company Number: None

PATIENT
  Age: 67 Year
  Sex: Male
  Weight: 82.9 kg

DRUGS (11)
  1. RIVAROXABAN 20MG [Suspect]
     Active Substance: RIVAROXABAN
     Indication: THROMBOSIS PROPHYLAXIS
     Route: 048
  2. NEBIVOLOL (BYSTOLIC) [Concomitant]
  3. MULTAQ [Concomitant]
     Active Substance: DRONEDARONE
  4. FLUTICASONE (FLONASE) [Concomitant]
  5. HYDROCODONE 10 MG WITH ACETAMINOPHEN 325 MG (NORCO) [Concomitant]
  6. PANTOPRAZOLE (PROTONIX) [Concomitant]
  7. RIVAROXABEN (XARELTO) [Concomitant]
  8. CIALIS [Concomitant]
     Active Substance: TADALAFIL
  9. LOSARTAN (COZAAR) [Concomitant]
  10. CALCIUM CARBONATE. [Concomitant]
     Active Substance: CALCIUM CARBONATE
  11. FEXOFENADINE HC1 (ALLEGRA PO) [Concomitant]

REACTIONS (2)
  - Lower gastrointestinal haemorrhage [None]
  - Drug interaction [None]

NARRATIVE: CASE EVENT DATE: 20150205
